FAERS Safety Report 4698475-6 (Version None)
Quarter: 2005Q2

REPORT INFORMATION
  Report Type: 
  Country: None (occurrence: None)
  Receive Date: 20050622
  Receipt Date: 20050607
  Transmission Date: 20051028
  Serious: Yes (Hospitalization)
  Sender: FDA-Public Use
  Company Number: 8010843

PATIENT
  Age: 49 Year
  Sex: Male
  Weight: 83.18 kg

DRUGS (9)
  1. LORTAB [Suspect]
     Indication: PAIN
     Dosage: PRN PO
     Route: 048
     Dates: start: 20050101
  2. OXYTROL [Suspect]
     Indication: HYPERTONIC BLADDER
     Dosage: 3.9 MG 2/W TOP
     Dates: start: 20041018, end: 20050313
  3. ALLOPURINOL [Concomitant]
  4. TRAZODONE [Concomitant]
  5. PROTONIX [Concomitant]
  6. FLOMAX [Concomitant]
  7. REGLAN [Concomitant]
  8. COMBIVENT [Concomitant]
  9. CIPRO [Concomitant]

REACTIONS (11)
  - BLOOD CULTURE POSITIVE [None]
  - FALL [None]
  - HEAD INJURY [None]
  - INJURY [None]
  - NEPHROLITHIASIS [None]
  - PNEUMONIA [None]
  - SEPSIS [None]
  - STAPHYLOCOCCAL INFECTION [None]
  - TREATMENT NONCOMPLIANCE [None]
  - URINARY RETENTION [None]
  - URINARY TRACT INFECTION [None]
